FAERS Safety Report 20392743 (Version 3)
Quarter: 2022Q2

REPORT INFORMATION
  Report Type: Spontaneous
  Country: BR (occurrence: BR)
  Receive Date: 20220128
  Receipt Date: 20220518
  Transmission Date: 20220721
  Serious: Yes (Disabling, Other)
  Sender: FDA-Public Use
  Company Number: BR-BoehringerIngelheim-2022-BI-109134

PATIENT
  Age: 62 Year
  Sex: Female
  Weight: 150 kg

DRUGS (7)
  1. BEROTEC [Suspect]
     Active Substance: FENOTEROL HYDROBROMIDE
     Indication: Asthma
     Dosage: 20 DROPS,
     Route: 055
     Dates: start: 2000, end: 2019
  2. ATROVENT [Suspect]
     Active Substance: IPRATROPIUM BROMIDE
     Indication: Asthma
     Dosage: 30 DROPS,
     Route: 055
     Dates: start: 2000, end: 2019
  3. BALCOR [Concomitant]
     Indication: Tachycardia
  4. ASPIRIN [Concomitant]
     Active Substance: ASPIRIN
     Indication: Product used for unknown indication
  5. BUDESONIDE\FORMOTEROL FUMARATE [Concomitant]
     Active Substance: BUDESONIDE\FORMOTEROL FUMARATE
     Indication: Product used for unknown indication
     Dosage: 20
  6. XOLAIR [Concomitant]
     Active Substance: OMALIZUMAB
     Indication: Asthma
  7. BENICAR [Concomitant]
     Active Substance: OLMESARTAN MEDOXOMIL
     Indication: Product used for unknown indication
     Dosage: 1 TABLET OF 40 MG/12.5 MG

REACTIONS (12)
  - Glaucoma [Not Recovered/Not Resolved]
  - Blindness unilateral [Not Recovered/Not Resolved]
  - Deafness [Not Recovered/Not Resolved]
  - Tachycardia [Recovered/Resolved]
  - Skin discolouration [Recovered/Resolved]
  - Basedow^s disease [Not Recovered/Not Resolved]
  - Strabismus [Recovered/Resolved]
  - Cataract [Recovered/Resolved]
  - Palpitations [Recovered/Resolved]
  - Pneumonia [Recovered/Resolved]
  - Eye inflammation [Not Recovered/Not Resolved]
  - Thyroid disorder [Not Recovered/Not Resolved]

NARRATIVE: CASE EVENT DATE: 20000101
